FAERS Safety Report 15811482 (Version 1)
Quarter: 2019Q1

REPORT INFORMATION
  Report Type: Spontaneous
  Country: US (occurrence: US)
  Receive Date: 20190111
  Receipt Date: 20190111
  Transmission Date: 20190417
  Serious: Yes (Hospitalization, Other)
  Sender: FDA-Public Use
  Company Number: US-ALVOGEN-2019-ALVOGEN-098089

PATIENT
  Age: 17 Year
  Sex: Male

DRUGS (4)
  1. TRETINOIN. [Concomitant]
     Active Substance: TRETINOIN
     Indication: ACNE
     Dosage: 0.1%
  2. SULFACETAMIDE SODIUM/SULFUR [Concomitant]
     Indication: ACNE
     Dosage: CLEANSER, 5-10%
  3. MINOCYCLINE [Suspect]
     Active Substance: MINOCYCLINE\MINOCYCLINE HYDROCHLORIDE
     Indication: ACNE
  4. BENZOYL PEROXIDE/CLINDAMYCIN PHOSPHATE [Concomitant]
     Indication: ACNE

REACTIONS (3)
  - IIIrd nerve paralysis [Recovered/Resolved]
  - Cerebral ischaemia [Recovered/Resolved]
  - Anti-neutrophil cytoplasmic antibody positive vasculitis [Recovered/Resolved]
